FAERS Safety Report 4450603-3 (Version None)
Quarter: 2004Q3

REPORT INFORMATION
  Report Type: 
  Country: None (occurrence: None)
  Receive Date: 20040914
  Receipt Date: 20040907
  Transmission Date: 20050211
  Serious: Yes (Death)
  Sender: FDA-Public Use
  Company Number: 163-20785-04030714

PATIENT
  Age: 47 Year
  Sex: Male

DRUGS (9)
  1. THALOMID [Suspect]
     Indication: METASTASES TO CENTRAL NERVOUS SYSTEM
     Dosage: 600 MG, DAILY, ORAL
     Route: 048
     Dates: start: 20020225, end: 20020521
  2. THALOMID [Suspect]
     Indication: METASTASES TO LIVER
     Dosage: 600 MG, DAILY, ORAL
     Route: 048
     Dates: start: 20020225, end: 20020521
  3. THALOMID [Suspect]
     Indication: SMALL CELL LUNG CANCER STAGE UNSPECIFIED
     Dosage: 600 MG, DAILY, ORAL
     Route: 048
     Dates: start: 20020225, end: 20020521
  4. DECADRON [Concomitant]
  5. TOPROL (METOPROLOL SUCCINATE) [Concomitant]
  6. CELEXA [Concomitant]
  7. ACETYLSALICYLIC ACID SRT [Concomitant]
  8. IMDUR [Concomitant]
  9. PEPCID [Concomitant]

REACTIONS (3)
  - MALIGNANT NEOPLASM PROGRESSION [None]
  - NON-SMALL CELL LUNG CANCER METASTATIC [None]
  - SEPTIC SHOCK [None]
